FAERS Safety Report 15589887 (Version 1)
Quarter: 2018Q4

REPORT INFORMATION
  Report Type: Spontaneous
  Country: US (occurrence: US)
  Receive Date: 20181106
  Receipt Date: 20181106
  Transmission Date: 20190205
  Serious: Yes (Other)
  Sender: FDA-Public Use
  Company Number: US-INCYTE CORPORATION-2018IN011193

PATIENT

DRUGS (1)
  1. JAKAVI [Suspect]
     Active Substance: RUXOLITINIB
     Indication: MYELOPROLIFERATIVE NEOPLASM
     Dosage: UNK
     Route: 065

REACTIONS (9)
  - Nystagmus [Unknown]
  - Vision blurred [Unknown]
  - Disturbance in attention [Unknown]
  - Ataxia [Unknown]
  - JC virus infection [Recovering/Resolving]
  - Progressive multifocal leukoencephalopathy [Unknown]
  - Hemianopia homonymous [Unknown]
  - Aphasia [Unknown]
  - Confusional state [Unknown]
